FAERS Safety Report 25910245 (Version 1)
Quarter: 2025Q4

REPORT INFORMATION
  Report Type: Spontaneous
  Country: US (occurrence: US)
  Receive Date: 20251012
  Receipt Date: 20251012
  Transmission Date: 20260118
  Serious: No
  Sender: SANOFI AVENTIS
  Company Number: US-SA-2025SA299579

PATIENT
  Age: 69 Year
  Sex: Female

DRUGS (1)
  1. DUPIXENT [Suspect]
     Active Substance: DUPILUMAB
     Indication: Asthma
     Dosage: 300 MG, QOW
     Route: 058

REACTIONS (9)
  - Wheezing [Unknown]
  - Therapeutic response shortened [Unknown]
  - Cough [Unknown]
  - Urinary incontinence [Unknown]
  - Dyspnoea [Unknown]
  - Back disorder [Unknown]
  - Constipation [Unknown]
  - General physical health deterioration [Unknown]
  - Back pain [Unknown]
